FAERS Safety Report 8949219 (Version 1)
Quarter: 2012Q4

REPORT INFORMATION
  Report Type: Report from Study
  Country: CA (occurrence: CA)
  Receive Date: 20121206
  Receipt Date: 20121206
  Transmission Date: 20130627
  Serious: Yes (Other)
  Sender: FDA-Public Use
  Company Number: CA-JNJFOC-20121114028

PATIENT
  Age: 63 Year
  Sex: Male
  Weight: 77.3 kg

DRUGS (5)
  1. REMICADE [Suspect]
     Indication: RHEUMATOID ARTHRITIS
     Dosage: 89th infusion
     Route: 042
  2. SYNTHROID [Concomitant]
     Route: 065
  3. METHOTREXATE [Concomitant]
     Route: 065
  4. FOLIC ACID [Concomitant]
     Route: 065
  5. PLAQUENIL [Concomitant]
     Route: 065

REACTIONS (1)
  - Hypoacusis [Unknown]
